FAERS Safety Report 5914433-5 (Version None)
Quarter: 2008Q4

REPORT INFORMATION
  Report Type: 
  Country: None (occurrence: None)
  Receive Date: 20081007
  Receipt Date: 20080923
  Transmission Date: 20090506
  Serious: Yes (Other)
  Sender: FDA-Public Use
  Company Number: 08-001533

PATIENT
  Age: 53 Year
  Sex: Female
  Weight: 54.4 kg

DRUGS (3)
  1. FEMRING [Suspect]
     Indication: MENOPAUSAL SYMPTOMS
     Dosage: 0.1 MG, QD, VAGINAL
     Route: 067
     Dates: start: 20080301
  2. NAPROSYN /00256201/ (NAPROXEN) [Concomitant]
  3. ACYCLOVIR /00587301/ (ACICLOVIR) [Concomitant]

REACTIONS (4)
  - HEADACHE [None]
  - NAIL DISORDER [None]
  - ONYCHOMADESIS [None]
  - STAPHYLOCOCCAL INFECTION [None]
